FAERS Safety Report 8821288 (Version 1)
Quarter: 2012Q4

REPORT INFORMATION
  Report Type: 
  Country: US (occurrence: US)
  Receive Date: 20121002
  Receipt Date: 20121002
  Transmission Date: 20130627
  Serious: Yes (Other)
  Sender: FDA-Public Use
  Company Number: US-TEVA-361298USA

PATIENT
  Age: 61 Year
  Sex: Female

DRUGS (2)
  1. COPAXONE [Suspect]
     Indication: MULTIPLE SCLEROSIS
     Dates: start: 20051101
  2. PHENTERMINE [Suspect]

REACTIONS (5)
  - Accidental overdose [Unknown]
  - Nausea [Unknown]
  - Vomiting [Unknown]
  - Hypotension [Unknown]
  - Dehydration [Unknown]
